FAERS Safety Report 9511721 (Version 1)
Quarter: 2013Q3

REPORT INFORMATION
  Report Type: Spontaneous
  Country: IE (occurrence: IE)
  Receive Date: 20130910
  Receipt Date: 20130910
  Transmission Date: 20140515
  Serious: Yes (Other)
  Sender: FDA-Public Use
  Company Number: IE-AMGEN-IRLSP2013062650

PATIENT
  Age: 55 Year
  Sex: Female

DRUGS (1)
  1. NEULASTA [Suspect]
     Indication: BREAST CANCER
     Dosage: 6 MG/0.6ML, POST CHEMO EVERY 3 WEEK
     Route: 058
     Dates: start: 20130830

REACTIONS (1)
  - Back pain [Not Recovered/Not Resolved]
